FAERS Safety Report 7720783-2 (Version None)
Quarter: 2011Q3

REPORT INFORMATION
  Report Type: 
  Country: None (occurrence: None)
  Receive Date: 20110831
  Receipt Date: 20110823
  Transmission Date: 20111222
  Serious: Yes (Hospitalization, Other)
  Sender: FDA-Public Use
  Company Number: GB-JNJFOC-20030901445

PATIENT
  Age: 59 Year
  Sex: Female

DRUGS (6)
  1. PREDNISOLONE [Concomitant]
  2. METHOTREXATE [Concomitant]
  3. ALENDRONATE SODIUM [Concomitant]
  4. FOLIC ACID [Concomitant]
  5. REMICADE [Suspect]
     Indication: RHEUMATOID ARTHRITIS
     Route: 042
     Dates: start: 20020904, end: 20020904
  6. REMICADE [Suspect]
     Route: 042
     Dates: start: 20030401, end: 20030401

REACTIONS (1)
  - TUBERCULOSIS [None]
